FAERS Safety Report 5158164-0 (Version None)
Quarter: 2006Q4

REPORT INFORMATION
  Report Type: 
  Country: None (occurrence: None)
  Receive Date: 20061120
  Receipt Date: 20061120
  Transmission Date: 20070319
  Serious: Yes (Life-Threatening)
  Sender: FDA-Public Use
  Company Number: None

PATIENT
  Age: 36 Year
  Sex: Male
  Weight: 77.1115 kg

DRUGS (1)
  1. LEXAPRO [Suspect]
     Indication: DEPRESSION
     Dosage: 10 MG  EVERY NIGHT PO  ONE DOSE ONLY
     Route: 048
     Dates: start: 20061114, end: 20061114

REACTIONS (3)
  - CHEST PAIN [None]
  - DIZZINESS [None]
  - MEGACOLON [None]
